FAERS Safety Report 5631808-2 (Version None)
Quarter: 2008Q1

REPORT INFORMATION
  Report Type: 
  Country: None (occurrence: None)
  Receive Date: 20080220
  Receipt Date: 20080220
  Transmission Date: 20080703
  Serious: No
  Sender: FDA-Public Use
  Company Number: None

PATIENT

DRUGS (2)
  1. HEPARIN LOCK-FLUSH [Suspect]
     Indication: THROMBOSIS PROPHYLAXIS
     Dosage: 3 ML  2 / DAY IV
     Route: 042
     Dates: start: 20080101, end: 20080217
  2. SALINE FLUSH 10 ML PRE-FILLED SIERRA INC / AM2 PAT [Suspect]
     Dosage: 10 ML AS NEEDED IV; NOT NEEDED - NEVER USED
     Route: 042

REACTIONS (1)
  - PHARMACEUTICAL PRODUCT COMPLAINT [None]
